FAERS Safety Report 5724605-0 (Version None)
Quarter: 2008Q2

REPORT INFORMATION
  Report Type: 
  Country: None (occurrence: None)
  Receive Date: 20080430
  Receipt Date: 20080430
  Transmission Date: 20081010
  Serious: Yes (Hospitalization, Disabling)
  Sender: FDA-Public Use
  Company Number: None

PATIENT

DRUGS (1)
  1. INDERAL [Suspect]
     Dosage: 40 BID

REACTIONS (2)
  - MITRAL VALVE PROLAPSE [None]
  - PALPITATIONS [None]
